FAERS Safety Report 15384229 (Version 1)
Quarter: 2018Q3

REPORT INFORMATION
  Report Type: Spontaneous
  Country: CA (occurrence: CA)
  Receive Date: 20180914
  Receipt Date: 20180914
  Transmission Date: 20181010
  Serious: Yes (Other)
  Sender: FDA-Public Use
  Company Number: CA-ROCHE-2181036

PATIENT
  Age: 42 Year
  Sex: Female
  Weight: 81 kg

DRUGS (24)
  1. CIMZIA [Suspect]
     Active Substance: CERTOLIZUMAB PEGOL
     Indication: PRODUCT USED FOR UNKNOWN INDICATION
     Route: 058
  2. OXYCODONE HYDROCHLORIDE. [Suspect]
     Active Substance: OXYCODONE HYDROCHLORIDE
     Indication: PRODUCT USED FOR UNKNOWN INDICATION
     Route: 065
  3. OXYCODONE TEREPHTHALATE [Suspect]
     Active Substance: OXYCODONE TEREPHTHALATE
     Indication: PRODUCT USED FOR UNKNOWN INDICATION
     Route: 065
  4. PANTOPRAZOLE SODIUM. [Concomitant]
     Active Substance: PANTOPRAZOLE SODIUM
  5. ENBREL [Suspect]
     Active Substance: ETANERCEPT
     Indication: PRODUCT USED FOR UNKNOWN INDICATION
     Route: 058
  6. VENTOLIN [Concomitant]
     Active Substance: ALBUTEROL SULFATE
  7. METHOTREXATE. [Suspect]
     Active Substance: METHOTREXATE
     Indication: PRODUCT USED FOR UNKNOWN INDICATION
     Route: 065
  8. CAMELLIA SINENSIS [Concomitant]
     Active Substance: GREEN TEA LEAF
     Route: 065
  9. VITAMIN C [Concomitant]
     Active Substance: ASCORBIC ACID
  10. VITAMIN D3 [Concomitant]
     Active Substance: CHOLECALCIFEROL
     Route: 065
  11. PREDNISONE. [Concomitant]
     Active Substance: PREDNISONE
  12. ACTEMRA [Suspect]
     Active Substance: TOCILIZUMAB
     Indication: PRODUCT USED FOR UNKNOWN INDICATION
     Route: 065
  13. FISH OIL [Concomitant]
     Active Substance: FISH OIL
     Route: 065
  14. HYDROXYCHLOROQUINE [Concomitant]
     Active Substance: HYDROXYCHLOROQUINE
     Route: 065
  15. REACTINE (CANADA) [Concomitant]
     Active Substance: CETIRIZINE HYDROCHLORIDE
  16. ACETAMINOPHEN. [Suspect]
     Active Substance: ACETAMINOPHEN
     Indication: PRODUCT USED FOR UNKNOWN INDICATION
     Route: 065
  17. ARAVA [Suspect]
     Active Substance: LEFLUNOMIDE
     Indication: PRODUCT USED FOR UNKNOWN INDICATION
     Route: 065
  18. ORENCIA [Suspect]
     Active Substance: ABATACEPT
     Indication: PRODUCT USED FOR UNKNOWN INDICATION
     Route: 065
  19. SIMPONI [Suspect]
     Active Substance: GOLIMUMAB
     Indication: PRODUCT USED FOR UNKNOWN INDICATION
     Route: 058
  20. CHLORHEXIDINE [Suspect]
     Active Substance: CHLORHEXIDINE
     Indication: PRODUCT USED FOR UNKNOWN INDICATION
     Route: 065
  21. D?ALPHA TOCOPHEROL [Concomitant]
     Route: 065
  22. IBUPROFEN. [Concomitant]
     Active Substance: IBUPROFEN
     Route: 065
  23. TYLENOL [Concomitant]
     Active Substance: ACETAMINOPHEN
  24. ZOPICLONE [Concomitant]
     Active Substance: ZOPICLONE
     Route: 065

REACTIONS (20)
  - Back pain [Unknown]
  - Headache [Unknown]
  - Respiratory disorder [Unknown]
  - Pain [Unknown]
  - Pruritus generalised [Unknown]
  - Rash [Unknown]
  - Vomiting [Unknown]
  - Peripheral swelling [Unknown]
  - Urticaria [Unknown]
  - Body temperature increased [Unknown]
  - Ear pain [Unknown]
  - Abdominal pain upper [Unknown]
  - Insomnia [Unknown]
  - Lower respiratory tract infection [Unknown]
  - Muscle spasticity [Unknown]
  - Asthenia [Unknown]
  - Diarrhoea [Unknown]
  - Joint swelling [Unknown]
  - Night sweats [Unknown]
  - Sinusitis [Unknown]
